FAERS Safety Report 16419402 (Version 2)
Quarter: 2019Q2

REPORT INFORMATION
  Report Type: Spontaneous
  Country: IT (occurrence: IT)
  Receive Date: 20190612
  Receipt Date: 20190622
  Transmission Date: 20190711
  Serious: Yes (Life-Threatening, Other)
  Sender: FDA-Public Use
  Company Number: IT-ACCORD-132722

PATIENT
  Age: 64 Year
  Sex: Female

DRUGS (1)
  1. BENDAMUSTINE/BENDAMUSTINE HYDROCHLORIDE [Suspect]
     Active Substance: BENDAMUSTINE HYDROCHLORIDE
     Indication: PRODUCT USED FOR UNKNOWN INDICATION
     Dosage: POWDER FOR CONCENTRATE FOR SOLUTION FOR INJECTION/INFUSION
     Route: 042
     Dates: start: 20190205, end: 20190406

REACTIONS (5)
  - Asthenia [Recovered/Resolved]
  - Decreased appetite [Recovered/Resolved]
  - Sputum decreased [Recovered/Resolved]
  - Cough [Recovered/Resolved]
  - Neutropenia [Recovered/Resolved]

NARRATIVE: CASE EVENT DATE: 20190422
